FAERS Safety Report 10081550 (Version 1)
Quarter: 2014Q2

REPORT INFORMATION
  Report Type: Spontaneous
  Country: US (occurrence: US)
  Receive Date: 20140416
  Receipt Date: 20140416
  Transmission Date: 20141212
  Serious: No
  Sender: FDA-Public Use
  Company Number: US-PFIZER INC-2014099969

PATIENT
  Sex: Female

DRUGS (9)
  1. CIPROFLOXACIN [Suspect]
     Dosage: UNK
  2. ERYTHROMYCIN [Suspect]
     Dosage: UNK
  3. PREDNISONE [Suspect]
     Dosage: UNK
  4. ZOSYN [Suspect]
     Dosage: UNK
  5. ZOLOFT [Suspect]
     Dosage: UNK
  6. BACTRIM [Suspect]
     Dosage: UNK
  7. VASOTEC [Suspect]
     Dosage: UNK
  8. LEVAQUIN [Suspect]
     Dosage: UNK
  9. ZOFRAN [Suspect]
     Dosage: UNK

REACTIONS (1)
  - Drug hypersensitivity [Unknown]
